FAERS Safety Report 17771384 (Version 2)
Quarter: 2020Q2

REPORT INFORMATION
  Report Type: Spontaneous
  Country: IT (occurrence: IT)
  Receive Date: 20200512
  Receipt Date: 20200519
  Transmission Date: 20200714
  Serious: Yes (Other)
  Sender: FDA-Public Use
  Company Number: IT-SA-2020SA120395

PATIENT
  Age: 67 Year
  Sex: Male
  Weight: 75 kg

DRUGS (7)
  1. JEVTANA [Suspect]
     Active Substance: CABAZITAXEL
     Indication: PROSTATE CANCER METASTATIC
     Dosage: 47.25 MG, QCY
     Route: 042
     Dates: start: 20191227, end: 20191227
  2. MONOKET [Concomitant]
     Active Substance: ISOSORBIDE MONONITRATE
     Dosage: 60 MG, QD
     Route: 048
     Dates: start: 20090601
  3. CARDIOASPIRIN [Concomitant]
     Active Substance: ASPIRIN
     Dosage: 100 MG, QD
     Route: 048
     Dates: start: 20090601, end: 20200327
  4. PANTORC [Concomitant]
     Active Substance: PANTOPRAZOLE SODIUM
     Dosage: 20 MG, QD
     Route: 048
     Dates: start: 20090601
  5. ALTIAZEM [Concomitant]
     Active Substance: DILTIAZEM HYDROCHLORIDE
     Dosage: 60 MG, QD
     Route: 048
     Dates: start: 20090601
  6. INHIXA [Concomitant]
     Active Substance: ENOXAPARIN SODIUM
     Dosage: 16000 KIU, QD
     Route: 058
     Dates: start: 20200327
  7. SIMVASTATIN. [Concomitant]
     Active Substance: SIMVASTATIN
     Indication: HYPERCHOLESTEROLAEMIA
     Dosage: 40 MG, QD
     Route: 048

REACTIONS (1)
  - Bone marrow toxicity [Recovered/Resolved]

NARRATIVE: CASE EVENT DATE: 20200409
